FAERS Safety Report 11039885 (Version 1)
Quarter: 2015Q2

REPORT INFORMATION
  Report Type: Spontaneous
  Country: US (occurrence: US)
  Receive Date: 20150416
  Receipt Date: 20150416
  Transmission Date: 20150821
  Serious: No
  Sender: FDA-Public Use
  Company Number: US-BAYER-2015-137802

PATIENT
  Age: 81 Year
  Sex: Female
  Weight: 70 kg

DRUGS (1)
  1. OXYTROL FOR WOMEN [Suspect]
     Active Substance: OXYBUTYNIN
     Indication: HYPERTONIC BLADDER
     Dosage: 1 U, UNK
     Route: 061
     Dates: start: 201502, end: 20150412

REACTIONS (4)
  - Dry eye [Recovered/Resolved]
  - Pain [None]
  - Expired product administered [None]
  - Back pain [Recovered/Resolved]

NARRATIVE: CASE EVENT DATE: 201502
